FAERS Safety Report 10170184 (Version 1)
Quarter: 2014Q2

REPORT INFORMATION
  Report Type: Spontaneous
  Country: TR (occurrence: TR)
  Receive Date: 20140513
  Receipt Date: 20140513
  Transmission Date: 20141212
  Serious: Yes (Life-Threatening, Hospitalization, Other)
  Sender: FDA-Public Use
  Company Number: TR-ACTAVIS-2014-09830

PATIENT
  Age: 29 Year
  Sex: Female

DRUGS (4)
  1. QUETIAPINE (UNKNOWN) [Suspect]
     Indication: SUICIDE ATTEMPT
     Dosage: ESTIMATED INGESTE AMOUNT OF 9 G
     Route: 048
  2. ESCITALOPRAM (UNKNOWN) [Suspect]
     Indication: SUICIDE ATTEMPT
     Dosage: ESTIMATED INGESTED AMOUNT OF 280 MG
     Route: 048
  3. IBUPROFEN (UNKNOWN) [Suspect]
     Indication: SUICIDE ATTEMPT
     Dosage: ESTIMATED INGESTED AMOUNT OF 4G
     Route: 048
  4. AMOXICILLIN (UNKNOWN) [Suspect]
     Indication: SUICIDE ATTEMPT
     Dosage: ESTIMATED INGESTED AMOUNT OF 5 G
     Route: 048

REACTIONS (5)
  - Coma [Recovered/Resolved]
  - Suicide attempt [Recovered/Resolved]
  - Tachycardia [Recovered/Resolved]
  - Hypotension [Recovered/Resolved]
  - Intentional overdose [Recovered/Resolved]
